FAERS Safety Report 9287126 (Version 1)
Quarter: 2013Q2

REPORT INFORMATION
  Report Type: Spontaneous
  Country: US (occurrence: None)
  Receive Date: 20130508
  Receipt Date: 20130508
  Transmission Date: 20140414
  Serious: Yes (Other)
  Sender: FDA-Public Use
  Company Number: CM13-0015

PATIENT
  Sex: 0

DRUGS (1)
  1. PHYTONADIONE [Suspect]
     Indication: PRODUCT USED FOR UNKNOWN INDICATION
     Dosage: N/A-NEEDLE STICK

REACTIONS (1)
  - Injury associated with device [None]
